FAERS Safety Report 8203437-8 (Version None)
Quarter: 2012Q1

REPORT INFORMATION
  Report Type: 
  Country: None (occurrence: None)
  Receive Date: 20120313
  Receipt Date: 20120229
  Transmission Date: 20120608
  Serious: Yes (Life-Threatening, Hospitalization, Other)
  Sender: FDA-Public Use
  Company Number: FR-BRISTOL-MYERS SQUIBB COMPANY-16426652

PATIENT
  Age: 21 Year
  Sex: Male

DRUGS (3)
  1. ALPRAZOLAM [Concomitant]
  2. ABILIFY [Suspect]
     Dosage: THERAPY STARTED 4 YEARS AGO.
     Route: 048
  3. RISPERDAL [Suspect]
     Dosage: RISPERDAL 1 MG, SCORED FILM-COATED TABLET
     Route: 048
     Dates: end: 20120118

REACTIONS (2)
  - PULMONARY EMBOLISM [None]
  - PSYCHOTIC DISORDER [None]
